FAERS Safety Report 7241097-3 (Version None)
Quarter: 2011Q1

REPORT INFORMATION
  Report Type: 
  Country: None (occurrence: None)
  Receive Date: 20110124
  Receipt Date: 20110117
  Transmission Date: 20110831
  Serious: Yes (Other)
  Sender: FDA-Public Use
  Company Number: BR-PFIZER INC-2011011004

PATIENT
  Age: 68 Year
  Sex: Male
  Weight: 79 kg

DRUGS (2)
  1. VIAGRA [Suspect]
     Indication: ERECTILE DYSFUNCTION
     Dosage: 50 MG, 2 TABLETS BEFORE SEXUAL INTERCOURSE
     Route: 048
  2. SOMALGIN [Concomitant]
     Dosage: UNK

REACTIONS (4)
  - ANGIOPLASTY [None]
  - NEPHROLITHIASIS [None]
  - VASCULAR GRAFT [None]
  - DRUG INEFFECTIVE [None]
